FAERS Safety Report 9773756 (Version 1)
Quarter: 2013Q4

REPORT INFORMATION
  Report Type: Spontaneous
  Country: US (occurrence: US)
  Receive Date: 20131219
  Receipt Date: 20131219
  Transmission Date: 20140711
  Serious: No
  Sender: FDA-Public Use
  Company Number: US-009507513-1312USA008021

PATIENT
  Sex: Male

DRUGS (2)
  1. INTRONA [Suspect]
     Indication: MALIGNANT MELANOMA
     Dosage: INFUSION
     Dates: start: 2013
  2. THERAPEUTIC RADIOPHARMACEUTICAL (UNSPECIFIED) [Concomitant]

REACTIONS (1)
  - Skin burning sensation [Unknown]
